FAERS Safety Report 5690656-8 (Version None)
Quarter: 2008Q1

REPORT INFORMATION
  Report Type: 
  Country: None (occurrence: None)
  Receive Date: 20080331
  Receipt Date: 20080331
  Transmission Date: 20080703
  Serious: Yes (Other)
  Sender: FDA-Public Use
  Company Number: None

PATIENT
  Age: 40 Year
  Sex: Female
  Weight: 77.1115 kg

DRUGS (3)
  1. BUDEPRION XL 300MG TEVA [Suspect]
     Indication: ATTENTION DEFICIT/HYPERACTIVITY DISORDER
     Dosage: 300MG ONCE DAILY PO
     Route: 048
     Dates: start: 20080101, end: 20080308
  2. BUDEPRION XL 300MG TEVA [Suspect]
     Indication: MAJOR DEPRESSION
     Dosage: 300MG ONCE DAILY PO
     Route: 048
     Dates: start: 20080101, end: 20080308
  3. PATANOL [Concomitant]

REACTIONS (8)
  - ASTHENIA [None]
  - CRYING [None]
  - IMPAIRED WORK ABILITY [None]
  - INSOMNIA [None]
  - IRRITABILITY [None]
  - PHARMACEUTICAL PRODUCT COMPLAINT [None]
  - THERAPEUTIC RESPONSE UNEXPECTED WITH DRUG SUBSTITUTION [None]
  - THINKING ABNORMAL [None]
